FAERS Safety Report 5456460-0 (Version None)
Quarter: 2007Q3

REPORT INFORMATION
  Report Type: 
  Country: None (occurrence: None)
  Receive Date: 20070914
  Receipt Date: 20070914
  Transmission Date: 20080115
  Serious: Yes (Life-Threatening, Hospitalization)
  Sender: FDA-Public Use
  Company Number: None

PATIENT
  Age: 42 Year
  Sex: Female
  Weight: 113.3993 kg

DRUGS (2)
  1. LYRICA [Suspect]
     Indication: ARTHRITIS
     Dosage: 100MG  DAILY  PO
     Route: 048
  2. LYRICA [Suspect]
     Indication: NEUROPATHY
     Dosage: 100MG  DAILY  PO
     Route: 048

REACTIONS (3)
  - ABNORMAL BEHAVIOUR [None]
  - AGITATION [None]
  - TRANSIENT ISCHAEMIC ATTACK [None]
